FAERS Safety Report 11183570 (Version 1)
Quarter: 2015Q2

REPORT INFORMATION
  Report Type: Spontaneous
  Country: CH (occurrence: CH)
  Receive Date: 20150612
  Receipt Date: 20150612
  Transmission Date: 20150821
  Serious: Yes (Hospitalization)
  Sender: FDA-Public Use
  Company Number: CH-AMGEN-CHESP2015055773

PATIENT
  Age: 87 Year
  Sex: Female

DRUGS (1)
  1. PROLIA [Suspect]
     Active Substance: DENOSUMAB
     Indication: PRODUCT USED FOR UNKNOWN INDICATION
     Dosage: UNK
     Route: 065
     Dates: start: 201108

REACTIONS (12)
  - Accident [Unknown]
  - Headache [Recovered/Resolved]
  - Joint swelling [Unknown]
  - Dyspnoea [Unknown]
  - Hyperhidrosis [Unknown]
  - Swelling face [Unknown]
  - Nervous system disorder [Unknown]
  - Neuropathy peripheral [Unknown]
  - Sleep disorder due to a general medical condition [Unknown]
  - Pain in extremity [Unknown]
  - Feeling hot [Unknown]
  - Neck pain [Unknown]

NARRATIVE: CASE EVENT DATE: 2013
